FAERS Safety Report 15203205 (Version 1)
Quarter: 2018Q3

REPORT INFORMATION
  Report Type: Spontaneous
  Country: GE (occurrence: GE)
  Receive Date: 20180726
  Receipt Date: 20180726
  Transmission Date: 20181010
  Serious: Yes (Hospitalization, Other)
  Sender: FDA-Public Use
  Company Number: GE-PFIZER INC-2018295868

PATIENT
  Age: 42 Year
  Sex: Male
  Weight: 64 kg

DRUGS (5)
  1. CYCLOSERINE. [Suspect]
     Active Substance: CYCLOSERINE
     Indication: TUBERCULOSIS
     Dosage: 750 MG, DAILY
     Route: 048
     Dates: start: 20160705, end: 20180522
  2. CYCLOSERINE. [Suspect]
     Active Substance: CYCLOSERINE
     Dosage: 250 MG, UNK
  3. DELAMANID [Suspect]
     Active Substance: DELAMANID
     Indication: TUBERCULOSIS
     Dosage: 200 MG, DAILY
     Route: 048
     Dates: start: 20170705, end: 201801
  4. CLOFAZIMINE [Suspect]
     Active Substance: CLOFAZIMINE
     Indication: TUBERCULOSIS
     Dosage: 100 MG, DAILY
     Route: 065
     Dates: start: 20161226, end: 20180522
  5. LINEZOLID. [Suspect]
     Active Substance: LINEZOLID
     Indication: TUBERCULOSIS
     Dosage: 600 MG, DAILY
     Route: 065
     Dates: start: 20160705, end: 20180522

REACTIONS (3)
  - Chronic obstructive pulmonary disease [Unknown]
  - Haemoptysis [Recovered/Resolved]
  - Hepatitis C [Unknown]

NARRATIVE: CASE EVENT DATE: 20180521
